FAERS Safety Report 21279300 (Version 7)
Quarter: 2023Q1

REPORT INFORMATION
  Report Type: Report from Study
  Country: US (occurrence: US)
  Receive Date: 20220901
  Receipt Date: 20230111
  Transmission Date: 20230418
  Serious: No
  Sender: FDA-Public Use
  Company Number: US-NOVARTISTESTPH-NVSC2022US196303

PATIENT
  Age: 58 Year
  Sex: Female

DRUGS (1)
  1. COSENTYX [Suspect]
     Active Substance: SECUKINUMAB
     Indication: Ankylosing spondylitis
     Dosage: 150 MG, QW (EVERY WEEK FOR FIVE WEEKS AND THEN EVERY FOUR WEEKS)
     Route: 058
     Dates: start: 20220228

REACTIONS (3)
  - Arthralgia [Recovering/Resolving]
  - Injection site pain [Unknown]
  - Sacral pain [Unknown]

NARRATIVE: CASE EVENT DATE: 20220228
